FAERS Safety Report 13041047 (Version 2)
Quarter: 2017Q1

REPORT INFORMATION
  Report Type: Spontaneous
  Country: US (occurrence: US)
  Receive Date: 20161219
  Receipt Date: 20170104
  Transmission Date: 20170428
  Serious: No
  Sender: FDA-Public Use
  Company Number: US-PFIZER INC-2016575885

PATIENT
  Age: 64 Year
  Sex: Female
  Weight: 90.7 kg

DRUGS (3)
  1. LYRICA [Suspect]
     Active Substance: PREGABALIN
     Indication: FIBROMYALGIA
     Dosage: 100 MG, UNK
     Dates: start: 2014, end: 2015
  2. LYRICA [Suspect]
     Active Substance: PREGABALIN
     Dosage: 100 MG, 2X/DAY
     Route: 048
     Dates: end: 2015
  3. LYRICA [Suspect]
     Active Substance: PREGABALIN
     Indication: NEURALGIA
     Dosage: 50 MG, UNK
     Dates: start: 2014, end: 2015

REACTIONS (9)
  - Weight increased [Not Recovered/Not Resolved]
  - Feeling abnormal [Unknown]
  - Rhinorrhoea [Unknown]
  - Feeding disorder [Unknown]
  - Feeling hot [Unknown]
  - Abdominal distension [Recovering/Resolving]
  - Waist circumference increased [Unknown]
  - Malaise [Unknown]
  - Furuncle [Unknown]
